FAERS Safety Report 10205249 (Version 1)
Quarter: 2014Q2

REPORT INFORMATION
  Report Type: Spontaneous
  Country: US (occurrence: None)
  Receive Date: 20140527
  Receipt Date: 20140527
  Transmission Date: 20141212
  Serious: Yes (Hospitalization)
  Sender: FDA-Public Use
  Company Number: None

PATIENT
  Age: 30 Year
  Sex: Male

DRUGS (12)
  1. VALGANCICLOVIR [Suspect]
     Indication: IMMUNOSUPPRESSION
     Route: 048
     Dates: end: 20120130
  2. AMLODIPINE [Concomitant]
  3. VITAMIN C [Concomitant]
  4. ATOVAQUONE [Concomitant]
  5. CALCIUM ACETATE [Concomitant]
  6. DOCUSATE [Concomitant]
  7. GABAPENTIN [Concomitant]
  8. HYDROMORPHONE [Concomitant]
  9. INSULIN ASPART [Concomitant]
  10. PANCREALINASE [Concomitant]
  11. PREDNISONE [Concomitant]
  12. ASPIRIN [Concomitant]

REACTIONS (4)
  - Pancytopenia [None]
  - Renal failure acute [None]
  - Nausea [None]
  - Vomiting [None]
